FAERS Safety Report 10449529 (Version 1)
Quarter: 2014Q3

REPORT INFORMATION
  Report Type: Spontaneous
  Country: US (occurrence: None)
  Receive Date: 20140910
  Receipt Date: 20140910
  Transmission Date: 20150326
  Serious: Yes (Other)
  Sender: FDA-Public Use
  Company Number: VAL_03364_2014

PATIENT
  Age: 35 Year
  Sex: Female

DRUGS (3)
  1. EVEROLIMUS [Suspect]
     Active Substance: EVEROLIMUS
     Indication: IMMUNOSUPPRESSION
     Dosage: 1 MG BID) UNKNOWN UNTIL NOT CONTINUING) THERAPY
  2. MYCOPHENOLIC ACID [Suspect]
     Active Substance: MYCOPHENOLIC ACID
     Indication: IMMUNOSUPPRESSION
  3. METOPROLOL (METOPROLOL-METOPROLOL TARTRATE) [Suspect]
     Active Substance: METOPROLOL
     Indication: IMMUNOSUPPRESSION

REACTIONS (7)
  - Pruritus [None]
  - Quality of life decreased [None]
  - Renal impairment [None]
  - Pemphigoid [None]
  - Varicella [None]
  - Swelling [None]
  - Blister [None]
